FAERS Safety Report 5589475-2 (Version None)
Quarter: 2008Q1

REPORT INFORMATION
  Report Type: 
  Country: None (occurrence: None)
  Receive Date: 20080114
  Receipt Date: 20071231
  Transmission Date: 20080703
  Serious: Yes (Hospitalization)
  Sender: FDA-Public Use
  Company Number: US-AMGEN-STX205626

PATIENT
  Sex: Male

DRUGS (2)
  1. ENBREL [Suspect]
     Indication: PSORIATIC ARTHROPATHY
     Route: 058
     Dates: start: 20051222
  2. ENBREL [Suspect]
     Indication: PSORIASIS

REACTIONS (10)
  - ABDOMINAL INFECTION [None]
  - ABDOMINAL PAIN [None]
  - ANOREXIA [None]
  - CHEST PAIN [None]
  - DIARRHOEA [None]
  - GALLBLADDER OPERATION [None]
  - INTRA-ABDOMINAL HAEMATOMA [None]
  - NAUSEA [None]
  - PSORIASIS [None]
  - WEIGHT DECREASED [None]
